FAERS Safety Report 8105329-1 (Version None)
Quarter: 2012Q1

REPORT INFORMATION
  Report Type: 
  Country: None (occurrence: None)
  Receive Date: 20120201
  Receipt Date: 20120125
  Transmission Date: 20120608
  Serious: Yes (Hospitalization)
  Sender: FDA-Public Use
  Company Number: PHEH2011US011387

PATIENT
  Sex: Female
  Weight: 90.703 kg

DRUGS (18)
  1. OXYBUTYNIN [Concomitant]
     Dosage: 5 MG, UNK
     Route: 048
  2. BACLOFEN [Concomitant]
     Dosage: 10 MG, UNK
     Route: 048
  3. CYMBALTA [Concomitant]
     Dosage: 20 MG, UNK
     Route: 048
  4. VITAMIN E [Concomitant]
     Dosage: 100 U, UNK
     Route: 048
  5. TEA, GREEN [Concomitant]
     Dosage: 150 MG, UNK
     Route: 048
  6. IRON [Concomitant]
     Dosage: 325 MG, UNK
     Route: 048
  7. VITAMIN B-12 [Concomitant]
     Dosage: 50 UG, UNK
     Route: 048
  8. EMPURA [Concomitant]
     Dosage: UNK UKN, UNK
  9. MULTI-VITAMINS [Concomitant]
     Dosage: UNK UKN, UNK
     Route: 048
  10. NITROFURANTOIN [Concomitant]
     Dosage: 100 MG, UNK
     Route: 048
  11. HYDROCODONE BITARTRATE AND ACETAMINOPHEN [Concomitant]
     Dosage: 1 DF, UNK
     Route: 048
  12. CRANBERRY [Concomitant]
     Dosage: 1000 MG, UNK
     Route: 048
  13. GILENYA [Suspect]
     Indication: RELAPSING-REMITTING MULTIPLE SCLEROSIS
     Dosage: 0.5 MG, QD
     Route: 048
     Dates: start: 20111122
  14. MELATONIN [Concomitant]
     Dosage: 1 MG, UNK
     Route: 048
  15. ASPIRIN [Concomitant]
     Dosage: 81 MG, UNK
     Route: 048
  16. REQUIP [Concomitant]
     Dosage: 0.25 MG, UNK
     Route: 048
  17. IBUPROFEN [Concomitant]
     Dosage: UNK UKN, UNK
     Route: 048
  18. LOVAZA [Concomitant]
     Dosage: 340 MG, UNK
     Route: 048

REACTIONS (3)
  - CHEST PAIN [None]
  - OEDEMA PERIPHERAL [None]
  - FALL [None]
